FAERS Safety Report 12987841 (Version 4)
Quarter: 2021Q3

REPORT INFORMATION
  Report Type: Report from Study
  Country: CA (occurrence: CA)
  Receive Date: 20161130
  Receipt Date: 20210917
  Transmission Date: 20211014
  Serious: Yes (Hospitalization, Other)
  Sender: FDA-Public Use
  Company Number: PHHY2013CA036390

PATIENT
  Age: 86 Year
  Sex: Male

DRUGS (3)
  1. TASIGNA [Suspect]
     Active Substance: NILOTINIB
     Dosage: UNK
     Route: 048
     Dates: start: 20121019, end: 20200910
  2. TASIGNA [Suspect]
     Active Substance: NILOTINIB
     Indication: CHRONIC MYELOID LEUKAEMIA
     Dosage: 400 MG, BID
     Route: 048
     Dates: start: 201009
  3. TASIGNA [Suspect]
     Active Substance: NILOTINIB
     Dosage: 400 MG QAM AND 200 MG QPM
     Route: 048

REACTIONS (8)
  - Arthralgia [Unknown]
  - Vision blurred [Unknown]
  - Decreased appetite [Unknown]
  - Visual impairment [Unknown]
  - Nausea [Unknown]
  - Cardiac disorder [Unknown]
  - Thrombosis [Unknown]
  - Weight decreased [Unknown]

NARRATIVE: CASE EVENT DATE: 20200910
